FAERS Safety Report 6392245-9 (Version None)
Quarter: 2009Q4

REPORT INFORMATION
  Report Type: 
  Country: None (occurrence: None)
  Receive Date: 20091007
  Receipt Date: 20090924
  Transmission Date: 20100525
  Serious: Yes (Hospitalization, Other)
  Sender: FDA-Public Use
  Company Number: US-PFIZER INC-2008085731

PATIENT
  Sex: Female
  Weight: 54 kg

DRUGS (9)
  1. DILANTIN [Suspect]
     Indication: CONVULSION
     Route: 048
     Dates: start: 20070101, end: 20070717
  2. DILANTIN [Suspect]
     Dosage: 50 MG, UNK
     Dates: start: 20070602
  3. NAPROSYN [Suspect]
  4. KEPPRA [Concomitant]
     Indication: CONVULSION
     Dosage: 1000 MG, 2X/DAY
     Route: 048
     Dates: start: 20070720
  5. KEPPRA [Concomitant]
     Dosage: 1500 MG, UNK
     Route: 048
     Dates: start: 20070818, end: 20070821
  6. POTASSIUM CHLORIDE [Concomitant]
     Dosage: UNK
     Dates: start: 20070717
  7. BUSPAR [Concomitant]
  8. PREMARIN [Concomitant]
  9. NORVASC [Concomitant]
     Indication: HYPERTENSION

REACTIONS (5)
  - CHEST PAIN [None]
  - HIP FRACTURE [None]
  - RESPIRATORY FAILURE [None]
  - STEVENS-JOHNSON SYNDROME [None]
  - TOXIC EPIDERMAL NECROLYSIS [None]
